FAERS Safety Report 12564706 (Version 1)
Quarter: 2016Q3

REPORT INFORMATION
  Report Type: Spontaneous
  Country: US (occurrence: None)
  Receive Date: 20160715
  Receipt Date: 20160715
  Transmission Date: 20161109
  Serious: No
  Sender: FDA-Public Use
  Company Number: None

PATIENT
  Sex: Female
  Weight: 53.52 kg

DRUGS (8)
  1. VITAMIN D [Concomitant]
     Active Substance: CHOLECALCIFEROL
  2. HYZ [Concomitant]
  3. FOSAMAX [Concomitant]
     Active Substance: ALENDRONATE SODIUM
  4. TIMOLOL GFS [Suspect]
     Active Substance: TIMOLOL MALEATE
     Indication: GLAUCOMA
     Dosage: 1 DROP ON EACH EYE EVERY NIGHT
     Route: 047
     Dates: start: 19920730
  5. MULTIVITAMINS [Concomitant]
     Active Substance: VITAMINS
  6. CALCIUM [Concomitant]
     Active Substance: CALCIUM
  7. PRINIVIL [Concomitant]
     Active Substance: LISINOPRIL
  8. ATIVAN [Concomitant]
     Active Substance: LORAZEPAM

REACTIONS (6)
  - Intraocular pressure increased [None]
  - Product physical consistency issue [None]
  - Inappropriate schedule of drug administration [None]
  - Drug ineffective [None]
  - Drug effect incomplete [None]
  - Intentional product use issue [None]
